FAERS Safety Report 9940280 (Version 1)
Quarter: 2014Q1

REPORT INFORMATION
  Report Type: Report from Study
  Country: US (occurrence: US)
  Receive Date: 20140303
  Receipt Date: 20140303
  Transmission Date: 20141002
  Serious: No
  Sender: FDA-Public Use
  Company Number: US-ABBVIE-13P-163-1032833-00

PATIENT
  Age: 51 Year
  Sex: Male

DRUGS (4)
  1. HUMIRA [Suspect]
     Indication: RHEUMATOID ARTHRITIS
     Dates: end: 201211
  2. HUMIRA [Suspect]
     Dates: start: 201212
  3. ASA [Concomitant]
     Indication: PRODUCT USED FOR UNKNOWN INDICATION
     Dosage: 81MG DAILY
  4. CADUET [Concomitant]
     Indication: ISCHAEMIC HEART DISEASE PROPHYLAXIS
     Dosage: ONE TABLET DAILY

REACTIONS (4)
  - Inflammation [Not Recovered/Not Resolved]
  - Nasopharyngitis [Unknown]
  - Oral herpes [Unknown]
  - Nasopharyngitis [Unknown]
